FAERS Safety Report 24398326 (Version 1)
Quarter: 2024Q4

REPORT INFORMATION
  Report Type: Spontaneous
  Country: US (occurrence: US)
  Receive Date: 20241004
  Receipt Date: 20241004
  Transmission Date: 20250115
  Serious: No
  Sender: INTRA-CELLULAR THERAPIES
  Company Number: US-INTRA-CELLULAR THERAPIES, INC.-2024ICT01502

PATIENT
  Age: 7 Decade
  Sex: Female

DRUGS (2)
  1. CAPLYTA [Suspect]
     Active Substance: LUMATEPERONE
     Indication: Bipolar disorder
     Dosage: 21 MG, 1X/DAY
     Dates: start: 20240904, end: 20240910
  2. CAPLYTA [Suspect]
     Active Substance: LUMATEPERONE
     Indication: Hypomania

REACTIONS (3)
  - Peripheral swelling [Not Recovered/Not Resolved]
  - Pruritus [Unknown]
  - Rash erythematous [Not Recovered/Not Resolved]

NARRATIVE: CASE EVENT DATE: 20240901
